FAERS Safety Report 23343391 (Version 5)
Quarter: 2025Q4

REPORT INFORMATION
  Report Type: Spontaneous
  Country: US (occurrence: US)
  Receive Date: 20231227
  Receipt Date: 20251211
  Transmission Date: 20260117
  Serious: No
  Sender: PFIZER
  Company Number: US-PFIZER INC-PV202300203796

PATIENT
  Age: 84 Year
  Sex: Female

DRUGS (2)
  1. IBRANCE [Suspect]
     Active Substance: PALBOCICLIB
     Dosage: DAILY WITH BREAKFAST, TAKE FOR 21 DAYS ON, 7 DAYS OFF
     Route: 048
  2. IBRANCE [Suspect]
     Active Substance: PALBOCICLIB
     Dosage: 75 MG, CYCLIC (1 TABLET DAILY FOR 14 DAYS, THEN OFF FOR 14 DAYS)

REACTIONS (5)
  - White blood cell count decreased [Unknown]
  - COVID-19 [Unknown]
  - Blood cholesterol abnormal [Unknown]
  - Arthritis [Unknown]
  - Off label use [Unknown]
